FAERS Safety Report 5069423-4 (Version None)
Quarter: 2006Q3

REPORT INFORMATION
  Report Type: 
  Country: None (occurrence: None)
  Receive Date: 20060802
  Receipt Date: 20060802
  Transmission Date: 20061208
  Serious: Yes (Hospitalization)
  Sender: FDA-Public Use
  Company Number: None

PATIENT
  Age: 59 Year
  Sex: Male
  Weight: 82 kg

DRUGS (1)
  1. ADALIMUMAB 40 MG [Suspect]
     Indication: RHEUMATOID ARTHRITIS
     Dosage: SQ Q 2 WEEKS
     Route: 058

REACTIONS (2)
  - ABDOMINAL WALL ABSCESS [None]
  - INJECTION SITE ABSCESS [None]
